FAERS Safety Report 8829303 (Version 3)
Quarter: 2015Q2

REPORT INFORMATION
  Report Type: Spontaneous
  Country: US (occurrence: US)
  Receive Date: 20121008
  Receipt Date: 20150618
  Transmission Date: 20150821
  Serious: Yes (Other)
  Sender: FDA-Public Use
  Company Number: US-ASTRAZENECA-2008UW17153

PATIENT
  Age: 72 Year
  Sex: Female

DRUGS (4)
  1. NEXIUM [Suspect]
     Active Substance: ESOMEPRAZOLE MAGNESIUM
     Indication: ULCER
     Route: 048
  2. NEXIUM [Suspect]
     Active Substance: ESOMEPRAZOLE MAGNESIUM
     Indication: ULCER
     Route: 048
  3. NEXIUM [Suspect]
     Active Substance: ESOMEPRAZOLE MAGNESIUM
     Indication: ULCER
     Route: 048
  4. NEXIUM [Suspect]
     Active Substance: ESOMEPRAZOLE MAGNESIUM
     Route: 048

REACTIONS (5)
  - Gastrointestinal haemorrhage [Unknown]
  - Drug ineffective [Unknown]
  - Abdominal discomfort [Unknown]
  - Intentional product misuse [Unknown]
  - Drug dose omission [Unknown]
